FAERS Safety Report 4340779-0 (Version None)
Quarter: 2004Q2

REPORT INFORMATION
  Report Type: 
  Country: None (occurrence: None)
  Receive Date: 20040419
  Receipt Date: 20030424
  Transmission Date: 20050107
  Serious: Yes (Hospitalization)
  Sender: FDA-Public Use
  Company Number: US-GLAXOSMITHKLINE-A0406260A

PATIENT
  Age: 58 Year
  Sex: Female
  Weight: 87.7 kg

DRUGS (5)
  1. LITHIUM CARBONATE [Suspect]
     Indication: ILL-DEFINED DISORDER
     Route: 048
     Dates: start: 20030307
  2. DEPAKOTE [Concomitant]
     Route: 048
  3. KEFLEX [Concomitant]
     Indication: INFECTION
     Route: 042
  4. KEFLEX [Concomitant]
     Route: 048
  5. CLOZARIL [Concomitant]
     Route: 065

REACTIONS (1)
  - THERAPEUTIC AGENT TOXICITY [None]
